FAERS Safety Report 6279911-0 (Version None)
Quarter: 2009Q3

REPORT INFORMATION
  Report Type: 
  Country: None (occurrence: None)
  Receive Date: 20090723
  Receipt Date: 20090526
  Transmission Date: 20100115
  Serious: No
  Sender: FDA-Public Use
  Company Number: US-AMGEN-KDL348835

PATIENT

DRUGS (2)
  1. PROCRIT [Suspect]
     Indication: RENAL FAILURE CHRONIC
  2. IRON SULFATETHIAMIN COMPOUND TAB [Concomitant]

REACTIONS (1)
  - SERUM FERRITIN INCREASED [None]
